FAERS Safety Report 9333422 (Version 1)
Quarter: 2013Q2

REPORT INFORMATION
  Report Type: Spontaneous
  Country: US (occurrence: None)
  Receive Date: 20130604
  Receipt Date: 20130604
  Transmission Date: 20140414
  Serious: Yes (Hospitalization)
  Sender: FDA-Public Use
  Company Number: FK201301828

PATIENT
  Age: 22 Year
  Sex: Male

DRUGS (1)
  1. ETOPOSIDE (ETOPOSIDE) [Suspect]
     Indication: HISTIOCYTOSIS HAEMATOPHAGIC

REACTIONS (1)
  - Posterior reversible encephalopathy syndrome [None]
